FAERS Safety Report 6823719-1 (Version None)
Quarter: 2010Q3

REPORT INFORMATION
  Report Type: 
  Country: None (occurrence: None)
  Receive Date: 20100708
  Receipt Date: 20060826
  Transmission Date: 20110219
  Serious: No
  Sender: FDA-Public Use
  Company Number: US-PFIZER INC-2006105404

PATIENT
  Sex: Male
  Weight: 87.09 kg

DRUGS (9)
  1. CHANTIX [Suspect]
     Indication: SMOKING CESSATION THERAPY
     Dates: start: 20060820
  2. THEOPHYLLINE [Concomitant]
  3. ZOCOR [Concomitant]
     Indication: BLOOD CHOLESTEROL INCREASED
  4. TOPROL-XL [Concomitant]
     Indication: BLOOD PRESSURE
  5. ZOLPIDEM [Concomitant]
  6. RANITIDINE [Concomitant]
  7. ACETYLSALICYLIC ACID [Concomitant]
  8. SPIRIVA [Concomitant]
  9. AZMACORT [Concomitant]

REACTIONS (1)
  - NAUSEA [None]
